FAERS Safety Report 6323409-8 (Version None)
Quarter: 2009Q3

REPORT INFORMATION
  Report Type: 
  Country: None (occurrence: None)
  Receive Date: 20090824
  Receipt Date: 20090406
  Transmission Date: 20100115
  Serious: No
  Sender: FDA-Public Use
  Company Number: US-ABBOTT-09P-163-0566737-00

PATIENT
  Sex: Female
  Weight: 90.8 kg

DRUGS (9)
  1. NIASPAN [Suspect]
     Indication: BLOOD CHOLESTEROL INCREASED
     Route: 048
     Dates: start: 20090402, end: 20090403
  2. CALCIUM [Concomitant]
     Indication: BONE DISORDER
  3. VITAMIN D [Concomitant]
     Indication: MEDICAL DIET
     Route: 048
  4. VITAMIN B-12 [Concomitant]
     Indication: MEDICAL DIET
     Route: 048
  5. PANTOPRAZOLE SODIUM [Concomitant]
     Indication: ULCER HAEMORRHAGE
  6. AMLODIPINE BESYLATE [Concomitant]
     Indication: HYPERTENSION
     Route: 048
  7. MULTI-VITAMIN [Concomitant]
     Indication: MEDICAL DIET
     Dosage: UNKNOWN
     Route: 048
  8. LANTUS [Concomitant]
     Indication: TYPE 1 DIABETES MELLITUS
     Route: 058
  9. NOVOLOG [Concomitant]
     Indication: TYPE 1 DIABETES MELLITUS
     Route: 058

REACTIONS (1)
  - PRURITUS GENERALISED [None]
